FAERS Safety Report 7645179-3 (Version None)
Quarter: 2011Q3

REPORT INFORMATION
  Report Type: 
  Country: None (occurrence: None)
  Receive Date: 20110725
  Receipt Date: 20110711
  Transmission Date: 20111222
  Serious: Yes (Hospitalization)
  Sender: FDA-Public Use
  Company Number: LTI2011A00198

PATIENT
  Age: 65 Year
  Sex: Female

DRUGS (3)
  1. HUMIRA [Suspect]
     Indication: RHEUMATOID ARTHRITIS
     Dosage: (40 MG, 1 IN 2 WK)  SUBCUTANEOUS
     Route: 058
     Dates: start: 20101127, end: 20110124
  2. LANSOPRAZOLE [Suspect]
     Indication: PROPHYLAXIS
     Dosage: 30 MG (30 MG, 1 IN 1 D) 1) ORAL
     Route: 048
     Dates: start: 20101115, end: 20110223
  3. ARAVA [Suspect]
     Indication: RHEUMATOID ARTHRITIS
     Dosage: 20 MG (10 MG,2 IN 1 D) 1) ORAL
     Route: 048
     Dates: end: 20110126

REACTIONS (5)
  - VASCULITIS [None]
  - ACUTE GENERALISED EXANTHEMATOUS PUSTULOSIS [None]
  - CHOLESTASIS [None]
  - PYREXIA [None]
  - CYTOLYTIC HEPATITIS [None]
